FAERS Safety Report 5584630-X (Version None)
Quarter: 2008Q1

REPORT INFORMATION
  Report Type: 
  Country: None (occurrence: None)
  Receive Date: 20080108
  Receipt Date: 20071226
  Transmission Date: 20080703
  Serious: Yes (Other)
  Sender: FDA-Public Use
  Company Number: JP-PFIZER INC-2008001221

PATIENT
  Age: 60 Year

DRUGS (2)
  1. MIGLITOL TABLET [Suspect]
     Indication: DIABETES MELLITUS
     Route: 048
  2. AMARYL [Concomitant]
     Route: 048

REACTIONS (2)
  - MUSCULAR WEAKNESS [None]
  - SENSORY LOSS [None]
